FAERS Safety Report 24893872 (Version 1)
Quarter: 2025Q1

REPORT INFORMATION
  Report Type: Spontaneous
  Country: US (occurrence: US)
  Receive Date: 20250128
  Receipt Date: 20250128
  Transmission Date: 20250408
  Serious: Yes (Hospitalization, Disabling)
  Sender: MYLAN
  Company Number: US-MYLANLABS-2025M1006509

PATIENT
  Age: 40 Year
  Sex: Male

DRUGS (6)
  1. HEPARIN [Suspect]
     Active Substance: HEPARIN SODIUM
     Indication: Peripheral artery thrombosis
     Route: 065
  2. APIXABAN [Suspect]
     Active Substance: APIXABAN
     Indication: Peripheral artery thrombosis
     Route: 065
  3. ASPIRIN [Suspect]
     Active Substance: ASPIRIN
     Indication: Peripheral artery thrombosis
     Route: 065
  4. RIVAROXABAN [Suspect]
     Active Substance: RIVAROXABAN
     Indication: Peripheral artery thrombosis
     Route: 065
  5. CLOPIDOGREL [Suspect]
     Active Substance: CLOPIDOGREL BISULFATE
     Indication: Peripheral artery thrombosis
     Route: 065
  6. WARFARIN [Suspect]
     Active Substance: WARFARIN
     Indication: Peripheral artery thrombosis
     Route: 065

REACTIONS (1)
  - Drug ineffective [Unknown]
